FAERS Safety Report 4580582-X (Version None)
Quarter: 2005Q1

REPORT INFORMATION
  Report Type: 
  Country: None (occurrence: None)
  Receive Date: 20050214
  Receipt Date: 20040416
  Transmission Date: 20050727
  Serious: No
  Sender: FDA-Public Use
  Company Number: US-GLAXOSMITHKLINE-A0507464A

PATIENT
  Age: 36 Year
  Sex: Male

DRUGS (2)
  1. LAMICTAL [Suspect]
     Indication: BIPOLAR DISORDER
     Dosage: 50MG PER DAY
     Route: 048
     Dates: start: 20040405
  2. TRILEPTAL [Concomitant]
     Indication: ILL-DEFINED DISORDER
     Dosage: 900MG PER DAY
     Dates: end: 20040413

REACTIONS (1)
  - HYPOAESTHESIA [None]
